FAERS Safety Report 13096741 (Version 1)
Quarter: 2017Q1

REPORT INFORMATION
  Report Type: Spontaneous
  Country: US (occurrence: US)
  Receive Date: 20170106
  Receipt Date: 20170106
  Transmission Date: 20170428
  Serious: No
  Sender: FDA-Public Use
  Company Number: None

PATIENT
  Age: 58 Year
  Sex: Female

DRUGS (1)
  1. ZIPRASIDONE 20MG BID UNKNOWN [Suspect]
     Active Substance: ZIPRASIDONE
     Indication: AFFECTIVE DISORDER
     Dates: start: 20130522, end: 20130620

REACTIONS (3)
  - General symptom [None]
  - Product substitution issue [None]
  - Disease recurrence [None]

NARRATIVE: CASE EVENT DATE: 20130522
